FAERS Safety Report 21257259 (Version 1)
Quarter: 2022Q3

REPORT INFORMATION
  Report Type: Spontaneous
  Country: US (occurrence: None)
  Receive Date: 20220826
  Receipt Date: 20220826
  Transmission Date: 20221026
  Serious: Yes (Hospitalization, Other)
  Sender: FDA-Public Use
  Company Number: US-Emmaus Medical, Inc.-EMM202208-000178

PATIENT
  Age: 9 Year
  Sex: Male

DRUGS (1)
  1. ENDARI [Suspect]
     Active Substance: GLUTAMINE
     Indication: Sickle cell disease
     Dosage: 5 GM
     Route: 048

REACTIONS (6)
  - Nasopharyngitis [Unknown]
  - Pyrexia [Unknown]
  - Illness [Unknown]
  - Infection [Unknown]
  - Splenectomy [Unknown]
  - Acute chest syndrome [Unknown]
